FAERS Safety Report 7682512-0 (Version None)
Quarter: 2011Q3

REPORT INFORMATION
  Report Type: 
  Country: None (occurrence: None)
  Receive Date: 20110815
  Receipt Date: 20110809
  Transmission Date: 20111222
  Serious: Yes (Death, Other)
  Sender: FDA-Public Use
  Company Number: PHHY2011DE71751

PATIENT
  Sex: Female

DRUGS (1)
  1. ZOLEDRONIC ACID [Suspect]

REACTIONS (6)
  - DEATH [None]
  - INFECTION [None]
  - EXPOSED BONE IN JAW [None]
  - PAIN [None]
  - OSTEONECROSIS OF JAW [None]
  - BONE FISTULA [None]
